FAERS Safety Report 4825817-0 (Version None)
Quarter: 2005Q4

REPORT INFORMATION
  Report Type: 
  Country: None (occurrence: None)
  Receive Date: 20051111
  Receipt Date: 20051101
  Transmission Date: 20060501
  Serious: Yes (Other)
  Sender: FDA-Public Use
  Company Number: CA-JNJFOC-20051100449

PATIENT
  Sex: Male
  Weight: 2.45 kg

DRUGS (7)
  1. REMICADE [Suspect]
  2. REMICADE [Suspect]
  3. REMICADE [Suspect]
     Indication: CROHN'S DISEASE
  4. PENTASA [Concomitant]
     Indication: CROHN'S DISEASE
  5. FLAGYL [Concomitant]
     Indication: CROHN'S DISEASE
  6. BENADRYL [Concomitant]
     Indication: PREMEDICATION
  7. SOLU-CORTEF [Concomitant]
     Indication: PREMEDICATION

REACTIONS (1)
  - PREMATURE LABOUR [None]
